FAERS Safety Report 9710597 (Version 1)
Quarter: 2013Q4

REPORT INFORMATION
  Report Type: Spontaneous
  Country: US (occurrence: None)
  Receive Date: 20131125
  Receipt Date: 20131125
  Transmission Date: 20140711
  Serious: No
  Sender: FDA-Public Use
  Company Number: None

PATIENT
  Sex: Female
  Weight: 73.94 kg

DRUGS (4)
  1. LEVOFLOXACIN [Suspect]
     Indication: URINARY TRACT INFECTION
     Route: 048
     Dates: start: 20130923, end: 20130928
  2. DILTIAZEN ER CAP 180MG [Concomitant]
  3. SYNTHROID TAB 0.1MG [Concomitant]
  4. CENTRUM SILVER [Concomitant]

REACTIONS (4)
  - Feeling hot [None]
  - Chills [None]
  - Abnormal behaviour [None]
  - Abnormal sleep-related event [None]
